FAERS Safety Report 18756482 (Version 1)
Quarter: 2021Q1

REPORT INFORMATION
  Report Type: Spontaneous
  Country: CN (occurrence: CN)
  Receive Date: 20210119
  Receipt Date: 20210119
  Transmission Date: 20210419
  Serious: Yes (Hospitalization)
  Sender: FDA-Public Use
  Company Number: CN-ASTRAZENECA-2021A004644

PATIENT
  Age: 70 Year
  Sex: Male
  Weight: 65 kg

DRUGS (1)
  1. IMFINZI [Suspect]
     Active Substance: DURVALUMAB
     Indication: NON-SMALL CELL LUNG CANCER
     Dosage: ONE WAS 80ML AND THE OTHER WAS 120ML MONTHLY
     Route: 042
     Dates: start: 2020, end: 202006

REACTIONS (4)
  - Swelling [Recovering/Resolving]
  - Drug hypersensitivity [Unknown]
  - Rash [Recovering/Resolving]
  - Skin disorder [Unknown]

NARRATIVE: CASE EVENT DATE: 2020
